FAERS Safety Report 6060709-3 (Version None)
Quarter: 2009Q1

REPORT INFORMATION
  Report Type: 
  Country: None (occurrence: None)
  Receive Date: 20090202
  Receipt Date: 20090102
  Transmission Date: 20090719
  Serious: No
  Sender: FDA-Public Use
  Company Number: US-BAYER-200911699GPV

PATIENT
  Age: 52 Year
  Sex: Female
  Weight: 55 kg

DRUGS (1)
  1. SULAR [Suspect]
     Indication: HYPERTENSION
     Dosage: UNIT DOSE: 10 MG
     Route: 048
     Dates: start: 20070801, end: 20080101

REACTIONS (5)
  - HEART RATE IRREGULAR [None]
  - HYPERSENSITIVITY [None]
  - LIP BLISTER [None]
  - PALPITATIONS [None]
  - UNEVALUABLE EVENT [None]
